FAERS Safety Report 12958658 (Version 1)
Quarter: 2016Q4

REPORT INFORMATION
  Report Type: Report from Study
  Country: CA (occurrence: CA)
  Receive Date: 20161121
  Receipt Date: 20161121
  Transmission Date: 20170207
  Serious: Yes (Other)
  Sender: FDA-Public Use
  Company Number: CA-UCBSA-2014013756

PATIENT
  Age: 54 Year
  Sex: Male
  Weight: 111.6 kg

DRUGS (9)
  1. NAPROSYN [Concomitant]
     Active Substance: NAPROXEN
     Indication: ARTHRALGIA
     Dosage: 500 MG, 2X/DAY (BID)
     Route: 048
  2. CERTOLIZUMAB PEGOL PSA [Suspect]
     Active Substance: CERTOLIZUMAB PEGOL
     Indication: PSORIATIC ARTHROPATHY
     Dosage: 400 MG, EV 2 WEEKS(QOW), 3 DOSES
     Route: 058
     Dates: start: 20140612, end: 20140710
  3. INH [Concomitant]
     Active Substance: ISONIAZID
     Indication: TUBERCULOSIS
     Dosage: 300 MG, ONCE DAILY (QD)
     Route: 048
     Dates: start: 20140430
  4. VITAMIN B6 [Concomitant]
     Active Substance: PYRIDOXINE HYDROCHLORIDE
     Indication: PROPHYLAXIS
     Dosage: 50 MG, ONCE DAILY (QD)
     Route: 048
     Dates: start: 20140430
  5. COVERSYL [Concomitant]
     Active Substance: PERINDOPRIL
     Indication: HYPERTENSION
     Dosage: 2 MG, ONCE DAILY (QD)
     Route: 048
     Dates: start: 201402
  6. TRAMADOL. [Concomitant]
     Active Substance: TRAMADOL
     Indication: ARTHRALGIA
     Dosage: 325-37.5 MG, HS
     Route: 048
  7. CERTOLIZUMAB PEGOL PSA [Suspect]
     Active Substance: CERTOLIZUMAB PEGOL
     Dosage: 200 MG, EV 2 WEEKS(QOW)
     Route: 058
     Dates: start: 20140724, end: 201409
  8. METHOTREXATE. [Concomitant]
     Active Substance: METHOTREXATE
     Dosage: 15 MG, WEEKLY (QW)
     Route: 048
     Dates: start: 201209
  9. METHOTREXATE. [Concomitant]
     Active Substance: METHOTREXATE
     Indication: PSORIATIC ARTHROPATHY
     Dosage: 20 MG, WEEKLY (QW)

REACTIONS (1)
  - Infection [Recovered/Resolved]

NARRATIVE: CASE EVENT DATE: 20140918
